FAERS Safety Report 8481678-2 (Version None)
Quarter: 2012Q2

REPORT INFORMATION
  Report Type: 
  Country: None (occurrence: None)
  Receive Date: 20120402
  Receipt Date: 20101014
  Transmission Date: 20120825
  Serious: Yes (Other)
  Sender: FDA-Public Use
  Company Number: PHHY2010US69450

PATIENT
  Age: 83 Year
  Sex: Female

DRUGS (7)
  1. EXFORGE HCT [Suspect]
     Dosage: 160/10/5/12.5 MG
  2. LIPITOR [Concomitant]
  3. VITAMINS (NO INGREDIENTS/SUBSTANCES) [Concomitant]
  4. IBUPROFEN [Concomitant]
  5. LABETALOL HCL [Suspect]
     Dosage: 200;100 MG, UNK
  6. ZETIA [Concomitant]
  7. CEPHALEXIN [Concomitant]

REACTIONS (3)
  - FEELING ABNORMAL [None]
  - BLOOD PRESSURE DECREASED [None]
  - BLOOD PRESSURE INADEQUATELY CONTROLLED [None]
